FAERS Safety Report 9694667 (Version 1)
Quarter: 2013Q4

REPORT INFORMATION
  Report Type: Spontaneous
  Country: BR (occurrence: BR)
  Receive Date: 20131119
  Receipt Date: 20131119
  Transmission Date: 20140711
  Serious: Yes (Hospitalization)
  Sender: FDA-Public Use
  Company Number: BR-BIOGENIDEC-2013BI109379

PATIENT
  Age: 40 Year
  Sex: Female

DRUGS (8)
  1. TYSABRI [Suspect]
     Indication: MULTIPLE SCLEROSIS
     Route: 042
     Dates: start: 20130622
  2. LEVOTHYROXINE [Concomitant]
     Indication: HYPOTHYROIDISM
  3. VALSARTAN [Concomitant]
     Indication: HYPERTENSION
  4. WELLBUTRIN [Concomitant]
     Indication: DEPRESSION
  5. GLIFAGE XR [Concomitant]
     Indication: PRODUCT USED FOR UNKNOWN INDICATION
  6. VITAMIN D [Concomitant]
     Indication: PRODUCT USED FOR UNKNOWN INDICATION
  7. XENICAL [Concomitant]
     Indication: WEIGHT DECREASED
  8. VITAMIN B [Concomitant]

REACTIONS (6)
  - Fatigue [Unknown]
  - Paraesthesia [Recovered/Resolved]
  - Back pain [Unknown]
  - Muscle contracture [Not Recovered/Not Resolved]
  - Multiple sclerosis relapse [Unknown]
  - Weight decreased [Unknown]
